FAERS Safety Report 6353107-6 (Version None)
Quarter: 2009Q3

REPORT INFORMATION
  Report Type: 
  Country: None (occurrence: None)
  Receive Date: 20090912
  Receipt Date: 20090622
  Transmission Date: 20100115
  Serious: No
  Sender: FDA-Public Use
  Company Number: US-ABBOTT-08P-163-0453341-00

PATIENT
  Sex: Female
  Weight: 62.652 kg

DRUGS (14)
  1. HUMIRA [Suspect]
     Indication: RHEUMATOID ARTHRITIS
     Route: 050
     Dates: start: 20030101, end: 20040101
  2. HUMIRA [Suspect]
     Route: 050
     Dates: start: 20040101
  3. HUMIRA [Suspect]
     Indication: RHEUMATOID ARTHRITIS
     Dosage: THE PATIENT ADMINISTERED TWO PENS
     Route: 050
     Dates: start: 20080522, end: 20080522
  4. ARTHROTEC [Concomitant]
     Indication: RHEUMATOID ARTHRITIS
     Route: 048
  5. ARTHROTEC [Concomitant]
     Indication: OSTEOARTHRITIS
  6. METHOTREXATE [Concomitant]
     Indication: RHEUMATOID ARTHRITIS
     Route: 048
  7. METHYLPREDNISOLONE [Concomitant]
     Indication: RHEUMATOID ARTHRITIS
     Route: 048
  8. SIMVASTATIN [Concomitant]
     Indication: BLOOD CHOLESTEROL
     Route: 048
  9. DULOXETINE HYDROCHLORIDE [Concomitant]
     Indication: DEPRESSION
     Route: 048
  10. TRAZODONE [Concomitant]
     Indication: DEPRESSION
     Route: 048
  11. TRAZODONE [Concomitant]
     Indication: INSOMNIA
  12. VERAMYST [Concomitant]
     Indication: HYPERSENSITIVITY
     Dosage: ONE SPRAY EACH NOSTRIL DAILY
     Route: 055
  13. CALCIUM [Concomitant]
     Indication: MINERAL SUPPLEMENTATION
     Route: 048
  14. ALENDRONATE SODIUM [Concomitant]
     Indication: OSTEOPOROSIS
     Dosage: EVERY HS
     Route: 048

REACTIONS (4)
  - INCORRECT DOSE ADMINISTERED [None]
  - INJECTION SITE EXTRAVASATION [None]
  - JOINT ARTHROPLASTY [None]
  - SINUSITIS [None]
